FAERS Safety Report 7791517-0 (Version None)
Quarter: 2011Q4

REPORT INFORMATION
  Report Type: 
  Country: None (occurrence: None)
  Receive Date: 20111003
  Receipt Date: 20110921
  Transmission Date: 20120403
  Serious: Yes (Hospitalization)
  Sender: FDA-Public Use
  Company Number: US-BAYER-200934029NA

PATIENT
  Age: 21 Year
  Sex: Female
  Weight: 73 kg

DRUGS (8)
  1. DEPAKOTE [Concomitant]
     Dosage: UNK
     Dates: start: 20070101, end: 20090101
  2. ALBUTEROL [Concomitant]
     Dosage: UNK
     Dates: start: 20050101
  3. ESGIC [Concomitant]
     Indication: MIGRAINE
  4. LIBRAX [Concomitant]
  5. YAZ [Suspect]
     Indication: CONTRACEPTION
     Dosage: UNK
     Dates: start: 20070901, end: 20080915
  6. OMEPRAZOLE [Concomitant]
     Dosage: 20 MG/D, UNK
  7. IBUPROFEN [Concomitant]
     Indication: MIGRAINE
  8. PHENERGAN HCL [Concomitant]

REACTIONS (2)
  - PULMONARY EMBOLISM [None]
  - PAIN [None]
